FAERS Safety Report 12292624 (Version 1)
Quarter: 2016Q2

REPORT INFORMATION
  Report Type: Report from Study
  Country: US (occurrence: US)
  Receive Date: 20160421
  Receipt Date: 20160421
  Transmission Date: 20160815
  Serious: No
  Sender: FDA-Public Use
  Company Number: US-AMGEN-USASL2016012384

PATIENT
  Age: 65 Year
  Sex: Female

DRUGS (1)
  1. REPATHA [Suspect]
     Active Substance: EVOLOCUMAB
     Indication: PRODUCT USED FOR UNKNOWN INDICATION
     Dosage: 140 MG, Q2WK
     Route: 065
     Dates: start: 20151202

REACTIONS (11)
  - Oropharyngeal pain [Unknown]
  - Nausea [Unknown]
  - Restlessness [Unknown]
  - Nasopharyngitis [Unknown]
  - Head discomfort [Unknown]
  - Rhinorrhoea [Unknown]
  - Influenza [Unknown]
  - Middle ear effusion [Unknown]
  - Decreased appetite [Unknown]
  - Pain [Unknown]
  - Fatigue [Unknown]
